FAERS Safety Report 21061696 (Version 1)
Quarter: 2022Q3

REPORT INFORMATION
  Report Type: Other
  Country: CN (occurrence: None)
  Receive Date: 20220709
  Receipt Date: 20220709
  Transmission Date: 20221027
  Serious: Yes (Hospitalization, Other)
  Sender: FDA-Public Use
  Company Number: CN-ROCHE-2872575

PATIENT
  Age: 72 Year
  Sex: Male
  Weight: 58 kg

DRUGS (1)
  1. AVASTIN [Suspect]
     Active Substance: BEVACIZUMAB
     Indication: Non-small cell lung cancer
     Dosage: 100MG INJECTION
     Route: 041
     Dates: start: 20170406, end: 20211223

REACTIONS (11)
  - Tracheitis [Unknown]
  - Pneumonia [Unknown]
  - Pyrexia [Unknown]
  - Protein urine present [Recovering/Resolving]
  - Hypertension [Recovering/Resolving]
  - Hypertension [Unknown]
  - Toothache [Unknown]
  - Movement disorder [Unknown]
  - Nervous system disorder [Unknown]
  - Epilepsy [Unknown]
  - Parkinson^s disease [Unknown]

NARRATIVE: CASE EVENT DATE: 20210701
